FAERS Safety Report 5443463-5 (Version None)
Quarter: 2007Q3

REPORT INFORMATION
  Report Type: 
  Country: None (occurrence: None)
  Receive Date: 20070905
  Receipt Date: 20070823
  Transmission Date: 20080115
  Serious: Yes (Congenital Anomaly)
  Sender: FDA-Public Use
  Company Number: US-MERCK-0708USA05873

PATIENT
  Sex: Female
  Weight: 2 kg

DRUGS (4)
  1. CRIXIVAN [Suspect]
     Indication: HIV INFECTION
     Route: 064
     Dates: start: 19980401
  2. LAMIVUDINE [Concomitant]
     Indication: HIV INFECTION
     Route: 064
     Dates: start: 19980401
  3. ZIDOVUDINE [Concomitant]
     Route: 064
     Dates: start: 19980401
  4. ANTIMICROBIAL (UNSPECIFIED) [Concomitant]
     Route: 064

REACTIONS (5)
  - CARDIOVASCULAR DISORDER [None]
  - PREMATURE BABY [None]
  - SMALL FOR DATES BABY [None]
  - TRICUSPID VALVE INCOMPETENCE [None]
  - VENTRICULAR SEPTAL DEFECT [None]
